FAERS Safety Report 11907804 (Version 1)
Quarter: 2016Q1

REPORT INFORMATION
  Report Type: Report from Study
  Country: US (occurrence: US)
  Receive Date: 20160111
  Receipt Date: 20160111
  Transmission Date: 20160526
  Serious: No
  Sender: FDA-Public Use
  Company Number: US-ABBVIE-15P-163-1523056-00

PATIENT
  Sex: Male

DRUGS (5)
  1. DONEPEZIL HCL [Concomitant]
     Active Substance: DONEPEZIL HYDROCHLORIDE
     Indication: PRODUCT USED FOR UNKNOWN INDICATION
     Dosage: 1 TAB AS DIRECTED
     Dates: start: 20150910
  2. AMLODIPINE [Concomitant]
     Active Substance: AMLODIPINE BESYLATE
     Indication: PRODUCT USED FOR UNKNOWN INDICATION
     Dosage: 1 TAB AS DIRECTED
     Dates: start: 20150910
  3. DUOPA [Suspect]
     Active Substance: CARBIDOPA\LEVODOPA
     Indication: PARKINSON^S DISEASE
     Dosage: 5-6.5ML PER HOUR
     Route: 050
     Dates: start: 20150912
  4. RITALIN [Concomitant]
     Active Substance: METHYLPHENIDATE HYDROCHLORIDE
     Indication: PRODUCT USED FOR UNKNOWN INDICATION
     Dosage: 1 TAB AS DIRECTED
     Dates: start: 20150910
  5. GABAPENTIN. [Concomitant]
     Active Substance: GABAPENTIN
     Indication: PRODUCT USED FOR UNKNOWN INDICATION
     Dosage: 1 TAB AS DIRECTED
     Dates: start: 20150910

REACTIONS (3)
  - Gastrointestinal disorder [Recovered/Resolved]
  - Abdominal pain upper [Recovered/Resolved]
  - Constipation [Recovered/Resolved]
